FAERS Safety Report 23528607 (Version 1)
Quarter: 2024Q1

REPORT INFORMATION
  Report Type: Spontaneous
  Country: GB (occurrence: GB)
  Receive Date: 20240215
  Receipt Date: 20240215
  Transmission Date: 20240410
  Serious: Yes (Hospitalization, Other)
  Sender: FDA-Public Use
  Company Number: None

PATIENT
  Age: 81 Year
  Sex: Female
  Weight: 67 kg

DRUGS (1)
  1. SITAGLIPTIN PHOSPHATE [Suspect]
     Active Substance: SITAGLIPTIN PHOSPHATE
     Indication: Type 2 diabetes mellitus
     Dosage: 100 MG. ONCE A DAY IN MORNING
     Dates: end: 20240116

REACTIONS (4)
  - Joint swelling [Recovering/Resolving]
  - Fluid retention [Recovered/Resolved]
  - Dyspnoea [Recovering/Resolving]
  - Cardiac failure [Recovered/Resolved with Sequelae]
